FAERS Safety Report 17468685 (Version 1)
Quarter: 2020Q1

REPORT INFORMATION
  Report Type: Spontaneous
  Country: US (occurrence: US)
  Receive Date: 20200227
  Receipt Date: 20200227
  Transmission Date: 20200409
  Serious: Yes (Hospitalization, Other)
  Sender: FDA-Public Use
  Company Number: US-ASTRAZENECA-2020SE03687

PATIENT
  Age: 84 Year
  Sex: Female

DRUGS (4)
  1. LOKELMA [Suspect]
     Active Substance: SODIUM ZIRCONIUM CYCLOSILICATE
     Indication: HYPERKALAEMIA
     Dosage: 10 MG DAILY, 3 TIMES A DAY FOR 2 DAYS
     Route: 048
  2. LOKELMA [Suspect]
     Active Substance: SODIUM ZIRCONIUM CYCLOSILICATE
     Indication: HYPERKALAEMIA
     Route: 048
  3. LOKELMA [Suspect]
     Active Substance: SODIUM ZIRCONIUM CYCLOSILICATE
     Indication: HYPERKALAEMIA
     Route: 048
     Dates: start: 201912
  4. LISINOPRIL. [Suspect]
     Active Substance: LISINOPRIL
     Route: 048

REACTIONS (8)
  - Blood potassium decreased [Recovered/Resolved]
  - Renal impairment [Recovering/Resolving]
  - Pulmonary oedema [Recovering/Resolving]
  - Ventricular tachycardia [Recovering/Resolving]
  - Asthenia [Recovering/Resolving]
  - Blood bicarbonate increased [Recovering/Resolving]
  - Overdose [Unknown]
  - Blood creatinine increased [Recovering/Resolving]

NARRATIVE: CASE EVENT DATE: 201912
